FAERS Safety Report 15617804 (Version 1)
Quarter: 2018Q4

REPORT INFORMATION
  Report Type: Spontaneous
  Country: GB (occurrence: DK)
  Receive Date: 20181114
  Receipt Date: 20181114
  Transmission Date: 20190205
  Serious: Yes (Death, Hospitalization)
  Sender: FDA-Public Use
  Company Number: DK-FRESENIUS KABI-FK201811682

PATIENT
  Age: 79 Year
  Sex: Female

DRUGS (4)
  1. OMEPRAZOLE. [Concomitant]
     Active Substance: OMEPRAZOLE
     Indication: GASTROOESOPHAGEAL REFLUX DISEASE
     Dosage: STRENGTH: 20 MG.?TREATMENT STARTED BEFORE 8 MARCH2017
     Route: 048
  2. CARBOPLATIN INJECTION 10MG/ML [Suspect]
     Active Substance: CARBOPLATIN
     Indication: BREAST CANCER
     Dosage: STRENGTH: 10 MG/ML.?DOSE: 475 MG. 1 DOSE GIVEN.
     Route: 042
     Dates: start: 20180919
  3. NAVELBINE [Suspect]
     Active Substance: VINORELBINE TARTRATE
     Indication: BREAST CANCER
     Dosage: STRENGTH: 20 MG, 30 MG + 80 MG.?DOSE: 90 MG 19SEP2018 OG 120 MG 26SEP2018.
     Route: 048
     Dates: start: 20180919
  4. SIMVASTATIN. [Concomitant]
     Active Substance: SIMVASTATIN
     Indication: HYPERCHOLESTEROLAEMIA
     Dosage: STRENGTH: 20 MG.?TREATMENT STARTED BEFORE 25NOV 2016
     Route: 048

REACTIONS (1)
  - Febrile neutropenia [Fatal]

NARRATIVE: CASE EVENT DATE: 20180929
